FAERS Safety Report 7607052-6 (Version None)
Quarter: 2011Q3

REPORT INFORMATION
  Report Type: 
  Country: None (occurrence: None)
  Receive Date: 20110712
  Receipt Date: 20110712
  Transmission Date: 20111222
  Serious: Yes (Hospitalization)
  Sender: FDA-Public Use
  Company Number: None

PATIENT
  Age: 78 Year
  Sex: Male
  Weight: 84.1 kg

DRUGS (1)
  1. DIPYRIDAMOLE [Suspect]
     Dosage: MG ONCE IV
     Route: 042
     Dates: start: 20110310, end: 20110310

REACTIONS (5)
  - VOMITING [None]
  - DIZZINESS [None]
  - ABDOMINAL PAIN [None]
  - CHILLS [None]
  - NAUSEA [None]
